FAERS Safety Report 11517805 (Version 3)
Quarter: 2015Q4

REPORT INFORMATION
  Report Type: Spontaneous
  Country: US (occurrence: US)
  Receive Date: 20150917
  Receipt Date: 20151231
  Transmission Date: 20160304
  Serious: Yes (Death, Hospitalization, Other)
  Sender: FDA-Public Use
  Company Number: US-INCYTE CORPORATION-2015IN004558

PATIENT
  Sex: Female

DRUGS (4)
  1. IRON [Concomitant]
     Active Substance: IRON
  2. OXYCODONE [Concomitant]
     Active Substance: OXYCODONE
  3. VITAMIN D                          /00107901/ [Concomitant]
     Active Substance: ERGOCALCIFEROL
  4. JAKAFI [Suspect]
     Active Substance: RUXOLITINIB
     Indication: MYELOFIBROSIS
     Dosage: 20 MG, BID
     Route: 048
     Dates: start: 20150128

REACTIONS (12)
  - Neoplasm malignant [Unknown]
  - Respiratory failure [Unknown]
  - Acute megakaryocytic leukaemia [Unknown]
  - Anxiety [Unknown]
  - Pulmonary alveolar haemorrhage [Fatal]
  - Pancytopenia [Fatal]
  - Venoocclusive liver disease [Unknown]
  - Haemoptysis [Unknown]
  - Dyspnoea [Unknown]
  - Cough [Unknown]
  - Bacteraemia [Unknown]
  - Stomatitis [Unknown]

NARRATIVE: CASE EVENT DATE: 2015
